FAERS Safety Report 9669668 (Version 1)
Quarter: 2013Q4

REPORT INFORMATION
  Report Type: Spontaneous
  Country: US (occurrence: US)
  Receive Date: 20131105
  Receipt Date: 20131105
  Transmission Date: 20140711
  Serious: Yes (Other)
  Sender: FDA-Public Use
  Company Number: US-FRI-1000050592

PATIENT
  Sex: Male

DRUGS (1)
  1. TEFLARO [Suspect]

REACTIONS (1)
  - Liver function test abnormal [Recovering/Resolving]
